FAERS Safety Report 4929791-8 (Version None)
Quarter: 2006Q1

REPORT INFORMATION
  Report Type: 
  Country: None (occurrence: None)
  Receive Date: 20060127
  Receipt Date: 20051118
  Transmission Date: 20060701
  Serious: Yes (Other)
  Sender: FDA-Public Use
  Company Number: 2005158965

PATIENT
  Age: 49 Year
  Sex: Female

DRUGS (8)
  1. LYRICA [Suspect]
     Indication: FIBROMYALGIA
     Dosage: 75 MG (75 MG, 1 IN 1 D)
     Dates: start: 20051111, end: 20051115
  2. MICARDIS [Concomitant]
  3. CENESTIN [Suspect]
  4. SYNTHROID [Concomitant]
  5. MOBIC [Concomitant]
  6. TYLENOL PM (DIPHENHYDRAMINE, PARACETAMOL) [Concomitant]
  7. VITAMINS [Concomitant]
  8. FOSAMAX [Concomitant]

REACTIONS (9)
  - ANXIETY [None]
  - BLOOD PRESSURE INCREASED [None]
  - CEREBROVASCULAR ACCIDENT [None]
  - DYSKINESIA [None]
  - FATIGUE [None]
  - FEELING ABNORMAL [None]
  - FLUSHING [None]
  - HEART RATE INCREASED [None]
  - VISION BLURRED [None]
